FAERS Safety Report 21534352 (Version 4)
Quarter: 2022Q4

REPORT INFORMATION
  Report Type: Report from Study
  Country: JP (occurrence: JP)
  Receive Date: 20221101
  Receipt Date: 20221221
  Transmission Date: 20230113
  Serious: Yes (Hospitalization)
  Sender: FDA-Public Use
  Company Number: JP-GLAXOSMITHKLINE-JP2022GSK156273

PATIENT

DRUGS (40)
  1. BELANTAMAB MAFODOTIN [Suspect]
     Active Substance: BELANTAMAB MAFODOTIN
     Indication: Plasma cell myeloma refractory
     Dosage: 2.5 MG/KG (156.75 MG), Q4W (DAY 1 OF 28 DAY CYCLE)
     Route: 042
     Dates: start: 20220531, end: 20220531
  2. BELANTAMAB MAFODOTIN [Suspect]
     Active Substance: BELANTAMAB MAFODOTIN
     Dosage: 1.9 MG/KG (119.13 MG), Q4W (DAY 1 OF 28 DAY CYCLE)
     Route: 042
     Dates: start: 20220628, end: 20220628
  3. BELANTAMAB MAFODOTIN [Suspect]
     Active Substance: BELANTAMAB MAFODOTIN
     Dosage: 1.9 MG/KG, Q4W (DAY 1 OF 28 DAY CYCLE)
     Route: 042
     Dates: start: 20220920, end: 20220920
  4. POMALIDOMIDE [Suspect]
     Active Substance: POMALIDOMIDE
     Indication: Plasma cell myeloma refractory
     Dosage: 4 MG, DAYS 1-21 OF 28 DAY CYCLE
     Route: 048
     Dates: start: 20220531, end: 20220606
  5. POMALIDOMIDE [Suspect]
     Active Substance: POMALIDOMIDE
     Dosage: 3 MG, DAYS 1-21 OF 28 DAY CYCLE
     Route: 048
     Dates: start: 20220628, end: 20220711
  6. POMALIDOMIDE [Suspect]
     Active Substance: POMALIDOMIDE
     Dosage: 1 MG, DAYS 1-21 OF 28 DAY CYCLE
     Route: 048
     Dates: start: 20221018
  7. DEXAMETHASONE [Suspect]
     Active Substance: DEXAMETHASONE
     Indication: Plasma cell myeloma refractory
     Dosage: 40 MG, DAYS 1,8,AND 22 OF 28 DAY CYCLE
     Route: 048
     Dates: start: 20220531, end: 20220607
  8. DEXAMETHASONE [Suspect]
     Active Substance: DEXAMETHASONE
     Dosage: 20 MG (DAY 1,8,15 AND 22 OF 28 DAY CYCLE)
     Route: 048
     Dates: start: 20220628, end: 20220719
  9. DEXAMETHASONE [Suspect]
     Active Substance: DEXAMETHASONE
     Dosage: 20 MG, DAY 1 OF 28 DAY CYCLE
     Route: 048
     Dates: start: 20221018
  10. CEFEPIME [Suspect]
     Active Substance: CEFEPIME HYDROCHLORIDE
     Indication: Pneumonia
     Dosage: 2 G, BID (Q12H)
     Route: 042
     Dates: start: 20221028, end: 20221106
  11. VALSARTAN [Concomitant]
     Active Substance: VALSARTAN
     Indication: Hypertension
     Dosage: 160 MG, QD
     Route: 048
     Dates: start: 2000, end: 20221028
  12. VALSARTAN [Concomitant]
     Active Substance: VALSARTAN
     Dosage: 2 DF, QD (TABLET)
     Route: 048
     Dates: start: 20221104
  13. POTASSIUM ASPARTATE ANHYDROUS [Concomitant]
     Active Substance: POTASSIUM ASPARTATE ANHYDROUS
     Indication: Blood potassium decreased
     Dosage: 10.8 MEQ/DAY, TID
     Route: 048
     Dates: start: 20181106, end: 20221028
  14. TRAMADOL HYDROCHLORIDE [Concomitant]
     Active Substance: TRAMADOL HYDROCHLORIDE
     Indication: Neuropathy peripheral
     Dosage: 200 MG/DAY, QD
     Route: 048
     Dates: start: 20180427, end: 20221028
  15. TRAMADOL HYDROCHLORIDE [Concomitant]
     Active Substance: TRAMADOL HYDROCHLORIDE
     Dosage: 2 DF, QD (TABLET)
     Route: 048
     Dates: start: 20221104
  16. AMLODIPINE [Concomitant]
     Active Substance: AMLODIPINE BESYLATE
     Indication: Hypertension
     Dosage: 5 MG/DAY, QD
     Route: 048
     Dates: start: 20190604, end: 20221028
  17. AMLODIPINE [Concomitant]
     Active Substance: AMLODIPINE BESYLATE
     Dosage: 1 DF, QD (TABLET)
     Route: 048
     Dates: start: 20221104
  18. CYMBALTA [Concomitant]
     Active Substance: DULOXETINE HYDROCHLORIDE
     Indication: Neuropathy peripheral
     Dosage: 20 MG/DAY, QD
     Route: 048
     Dates: start: 20180403, end: 20221028
  19. CYMBALTA [Concomitant]
     Active Substance: DULOXETINE HYDROCHLORIDE
     Dosage: 1 CAPSULE QD
     Route: 048
     Dates: start: 20221104
  20. MIYA-BM [Concomitant]
     Active Substance: CLOSTRIDIUM BUTYRICUM SPORES STRAIN M-55
     Indication: Diarrhoea
     Dosage: 3 G, TID
     Route: 048
     Dates: start: 20180601, end: 20220606
  21. MIYA-BM [Concomitant]
     Active Substance: CLOSTRIDIUM BUTYRICUM SPORES STRAIN M-55
     Dosage: 6 DF, TID (TABLET)
     Route: 048
     Dates: start: 20220607, end: 20221028
  22. MIYA-BM [Concomitant]
     Active Substance: CLOSTRIDIUM BUTYRICUM SPORES STRAIN M-55
     Dosage: 6 DF, TID (TABLET)
     Route: 048
     Dates: start: 20221104
  23. VONOPRAZAN FUMARATE [Concomitant]
     Active Substance: VONOPRAZAN FUMARATE
     Indication: Abdominal pain upper
     Dosage: 20 MG/DAY, QD
     Route: 048
     Dates: start: 20181024, end: 20221028
  24. VONOPRAZAN FUMARATE [Concomitant]
     Active Substance: VONOPRAZAN FUMARATE
     Dosage: 1 DF, QD TABLET
     Route: 048
     Dates: start: 20221030
  25. SOLIFENACIN SUCCINATE [Concomitant]
     Active Substance: SOLIFENACIN SUCCINATE
     Indication: Neurogenic bladder
     Dosage: 5 MG/DAY, QD
     Route: 048
     Dates: start: 20220621, end: 20220809
  26. MIROGABALIN [Concomitant]
     Active Substance: MIROGABALIN
     Indication: Hypoaesthesia
     Dosage: 5 MG/DAY, QD
     Route: 048
     Dates: start: 20220719, end: 20220809
  27. GARENOXACIN MESYLATE [Concomitant]
     Active Substance: GARENOXACIN MESYLATE
     Indication: Upper respiratory tract infection
     Dosage: 400 MG, QD
     Route: 048
     Dates: start: 20220803, end: 20220809
  28. GARENOXACIN MESYLATE [Concomitant]
     Active Substance: GARENOXACIN MESYLATE
     Indication: Periodontal disease
     Dosage: 400 MG, QD
     Route: 048
     Dates: start: 20220920, end: 20221028
  29. TADALAFIL [Concomitant]
     Active Substance: TADALAFIL
     Indication: Neurogenic bladder
     Dosage: 5 MG, QD
     Route: 048
     Dates: start: 20220816, end: 20221028
  30. MIRABEGRON [Concomitant]
     Active Substance: MIRABEGRON
     Indication: Neurogenic bladder
     Dosage: 50 MG, QD
     Route: 048
     Dates: start: 20220816, end: 20221028
  31. LOXOPROFEN SODIUM DIHYDRATE [Concomitant]
     Active Substance: LOXOPROFEN SODIUM DIHYDRATE
     Indication: Back pain
     Dosage: 100 MG, QD
     Route: 061
     Dates: start: 20220816
  32. LOXOPROFEN SODIUM DIHYDRATE [Concomitant]
     Active Substance: LOXOPROFEN SODIUM DIHYDRATE
     Indication: Normal pressure hydrocephalus
     Dosage: 60 MG, QD
     Route: 061
     Dates: start: 20220916
  33. CARBAZOCHROME SODIUM SULFONATE [Concomitant]
     Active Substance: CARBAZOCHROME SODIUM SULFONATE
     Indication: Haemorrhage subcutaneous
     Dosage: 90 MG, TID
     Route: 048
     Dates: start: 20220823, end: 20220920
  34. REBAMIPIDE [Concomitant]
     Active Substance: REBAMIPIDE
     Indication: Normal pressure hydrocephalus
     Dosage: 100 MG, PRN
     Route: 048
     Dates: start: 20220916, end: 20221028
  35. TADALAFIL [Concomitant]
     Active Substance: TADALAFIL
     Indication: Neurogenic bladder
     Dosage: 1 DF, QD
     Route: 048
     Dates: start: 20221104
  36. MIRABEGRON [Concomitant]
     Active Substance: MIRABEGRON
     Indication: Neurogenic bladder
     Dosage: 1 DF, QD (TABLET)
     Route: 048
     Dates: start: 20221104
  37. POTASSIUM GLUCONATE [Concomitant]
     Active Substance: POTASSIUM GLUCONATE
     Indication: Blood potassium decreased
     Dosage: 3 PACKAGE TID
     Route: 048
     Dates: start: 20221101
  38. MAGNESIUM OXIDE [Concomitant]
     Active Substance: MAGNESIUM OXIDE
     Indication: Constipation
     Dosage: 3 DF, TID (TABLET)
     Route: 048
     Dates: start: 20221105
  39. SODIUM PICOSULFATE [Concomitant]
     Active Substance: SODIUM PICOSULFATE
     Indication: Constipation
     Dosage: 1 BOTTLE, PRN
     Route: 048
     Dates: start: 20221105
  40. LOXOPROFEN [Concomitant]
     Active Substance: LOXOPROFEN
     Indication: Normal pressure hydrocephalus
     Dosage: 60 MG, PRN
     Route: 048
     Dates: start: 20220916, end: 20221028

REACTIONS (1)
  - Pneumonia [Recovered/Resolved]

NARRATIVE: CASE EVENT DATE: 20221028
